FAERS Safety Report 6619992-5 (Version None)
Quarter: 2010Q1

REPORT INFORMATION
  Report Type: 
  Country: None (occurrence: None)
  Receive Date: 20100309
  Receipt Date: 20100302
  Transmission Date: 20100710
  Serious: Yes (Other)
  Sender: FDA-Public Use
  Company Number: US-BAYER-201012535BCC

PATIENT
  Age: 58 Year
  Sex: Male
  Weight: 91 kg

DRUGS (7)
  1. PHILLIPS NON-CONCENTRATED LIQUID WILD CHERRY [Suspect]
     Indication: CONSTIPATION
     Dosage: CONSUMER TOOK 2 TEASPOONS WITHOUT WATER
     Route: 048
     Dates: start: 20100227, end: 20100227
  2. PHILLIPS NON-CONCENTRATED LIQUID WILD CHERRY [Suspect]
     Dosage: CONSUMER TOOK 3 TEASPOONS WITH 12 OZ BOTTLE OF WATER
     Route: 048
     Dates: start: 20100301
  3. SEPTRA ANTIBIOTIC [Concomitant]
     Route: 065
  4. DIFLUCAN [Concomitant]
     Route: 065
  5. BENADRYL [Concomitant]
     Route: 065
  6. UNKNOWN CHEMOTHERAPY [Concomitant]
     Route: 065
  7. WHOLE BLOOD [Concomitant]

REACTIONS (4)
  - ASTHENIA [None]
  - PROCTALGIA [None]
  - PYREXIA [None]
  - RECTAL HAEMORRHAGE [None]
